FAERS Safety Report 21766209 (Version 1)
Quarter: 2022Q4

REPORT INFORMATION
  Report Type: Spontaneous
  Country: US (occurrence: None)
  Receive Date: 20221221
  Receipt Date: 20221221
  Transmission Date: 20230113
  Serious: Yes (Life-Threatening, Hospitalization, Other)
  Sender: FDA-Public Use
  Company Number: None

PATIENT
  Age: 55 Year
  Sex: Male
  Weight: 113.4 kg

DRUGS (1)
  1. PHENTERMINE [Suspect]
     Active Substance: PHENTERMINE
     Indication: Weight decreased
     Dosage: FREQUENCY : DAILY;?
     Route: 048

REACTIONS (3)
  - Cerebral haemorrhage [None]
  - Respiratory failure [None]
  - Brain oedema [None]

NARRATIVE: CASE EVENT DATE: 20220912
